FAERS Safety Report 16306268 (Version 2)
Quarter: 2019Q2

REPORT INFORMATION
  Report Type: Spontaneous
  Country: FR (occurrence: FR)
  Receive Date: 20190513
  Receipt Date: 20190530
  Transmission Date: 20190711
  Serious: Yes (Hospitalization)
  Sender: FDA-Public Use
  Company Number: FR-MYLANLABS-2019M1044413

PATIENT
  Age: 37 Year
  Sex: Female

DRUGS (10)
  1. ATARAX [Suspect]
     Active Substance: HYDROXYZINE HYDROCHLORIDE
     Indication: ANXIETY
     Dosage: 25 MILLIGRAM, QD (0-0-1)
     Route: 048
     Dates: start: 20181101, end: 20181102
  2. PRIMPERAN [Suspect]
     Active Substance: METOCLOPRAMIDE HYDROCHLORIDE
     Indication: PROPHYLAXIS OF NAUSEA AND VOMITING
     Dosage: 10 MG SB
     Route: 048
     Dates: start: 20181029, end: 20181030
  3. NEFOPAM [Suspect]
     Active Substance: NEFOPAM
     Indication: PROCEDURAL PAIN
     Dosage: 120 MILLIGRAM, QD
     Route: 042
     Dates: start: 20181028, end: 20181105
  4. ONDANSETRON. [Suspect]
     Active Substance: ONDANSETRON
     Indication: PROPHYLAXIS OF NAUSEA AND VOMITING
     Dosage: 4 MG SB
     Route: 042
     Dates: start: 20181030, end: 20181103
  5. PANTOPRAZOLE MYLAN 20 MG, COMPRIM? GASTRO-R?SISTANT [Suspect]
     Active Substance: PANTOPRAZOLE SODIUM
     Indication: GASTROOESOPHAGEAL REFLUX DISEASE
     Dosage: 20 MILLIGRAM, QD (0-0-1)
     Route: 048
     Dates: start: 20181030, end: 20181109
  6. PIPERACILLIN AND TAZOBACTAM [Suspect]
     Active Substance: PIPERACILLIN SODIUM\TAZOBACTAM SODIUM
     Indication: URINARY TRACT INFECTION
     Dosage: 4 DOSAGE FORM, QD
     Route: 042
     Dates: start: 20181030, end: 20181109
  7. PANTOPRAZOLE SODIUM. [Suspect]
     Active Substance: PANTOPRAZOLE SODIUM
     Indication: GASTROOESOPHAGEAL REFLUX DISEASE
     Dosage: 40 MILLIGRAM, QD (0-0-1)
     Route: 042
     Dates: start: 20181030, end: 20181102
  8. SPASFON LYOC [Suspect]
     Active Substance: PHLOROGLUCINOL
     Indication: GASTROINTESTINAL PAIN
     Dosage: 480 MILLIGRAM, QD (1-1-1)
     Route: 048
     Dates: start: 20181026, end: 20181030
  9. ONDANSETRON. [Suspect]
     Active Substance: ONDANSETRON
     Indication: PROPHYLAXIS OF NAUSEA AND VOMITING
     Dosage: 4 MG SB
     Route: 048
     Dates: start: 20181030, end: 20181030
  10. PHLOROGLUCINOL ARROW [Suspect]
     Active Substance: PHLOROGLUCINOL
     Indication: GASTROINTESTINAL PAIN
     Dosage: 8 AMP. : 40MG/4ML/AMP
     Route: 042
     Dates: start: 20181028, end: 20181102

REACTIONS (1)
  - Drug reaction with eosinophilia and systemic symptoms [Recovering/Resolving]

NARRATIVE: CASE EVENT DATE: 20181109
